FAERS Safety Report 19122705 (Version 2)
Quarter: 2021Q2

REPORT INFORMATION
  Report Type: Spontaneous
  Country: US (occurrence: US)
  Receive Date: 20210412
  Receipt Date: 20210419
  Transmission Date: 20210717
  Serious: Yes (Other)
  Sender: FDA-Public Use
  Company Number: US-PFIZER INC-2021359496

PATIENT
  Age: 59 Year

DRUGS (1)
  1. ESTRING [Suspect]
     Active Substance: ESTRADIOL
     Indication: CYSTITIS INTERSTITIAL
     Dosage: UNK

REACTIONS (4)
  - Brain injury [Unknown]
  - Confusional state [Unknown]
  - Off label use [Unknown]
  - Fatigue [Unknown]
